FAERS Safety Report 4850977-5 (Version None)
Quarter: 2005Q4

REPORT INFORMATION
  Report Type: 
  Country: None (occurrence: None)
  Receive Date: 20051130
  Receipt Date: 20051018
  Transmission Date: 20060501
  Serious: No
  Sender: FDA-Public Use
  Company Number: FABR-11291

PATIENT
  Age: 49 Year
  Sex: Male
  Weight: 85 kg

DRUGS (5)
  1. FABRAZYME [Suspect]
     Indication: FABRY'S DISEASE
     Dosage: 85 MG 2WKS IV
     Route: 042
     Dates: start: 20050421
  2. BENADRYL [Concomitant]
  3. ACETAMINOPHEN [Concomitant]
  4. PREDNISONE [Concomitant]
  5. IBUPROFEN [Concomitant]

REACTIONS (2)
  - PALLOR [None]
  - PERIPHERAL COLDNESS [None]
